FAERS Safety Report 7600911-X (Version None)
Quarter: 2011Q3

REPORT INFORMATION
  Report Type: 
  Country: None (occurrence: None)
  Receive Date: 20110711
  Receipt Date: 20110627
  Transmission Date: 20111222
  Serious: Yes (Hospitalization)
  Sender: FDA-Public Use
  Company Number: US-CELGENEUS-163-21880-11043431

PATIENT
  Sex: Male
  Weight: 90.8 kg

DRUGS (11)
  1. ASPIRIN [Concomitant]
     Route: 065
  2. CYMBALTA [Concomitant]
     Dosage: 60 MILLIGRAM
     Route: 048
  3. REVLIMID [Suspect]
     Indication: MULTIPLE MYELOMA
     Dosage: 25 MILLIGRAM
     Route: 048
     Dates: start: 20110403, end: 20110414
  4. LYRICA [Concomitant]
     Dosage: 100 MILLIGRAM
     Route: 048
  5. OXYCODONE HCL [Concomitant]
     Dosage: 10 MILLIGRAM
     Route: 048
  6. DEXAMETHASONE [Concomitant]
     Indication: MULTIPLE MYELOMA
     Route: 065
  7. LANTUS [Concomitant]
     Indication: DIABETES MELLITUS
     Dosage: 20 UNITS
     Route: 058
  8. AMITIZA [Concomitant]
     Dosage: 8 MICROGRAM
     Route: 048
  9. NOVOLOG [Concomitant]
     Indication: DIABETES MELLITUS
     Dosage: 100 UNITS
     Route: 058
  10. OXYCODONE HCL [Concomitant]
     Dosage: 5 MILLIGRAM
     Route: 048
  11. ZANTAC [Concomitant]
     Dosage: 300 MILLIGRAM
     Route: 048

REACTIONS (2)
  - LIVER FUNCTION TEST ABNORMAL [None]
  - OEDEMA PERIPHERAL [None]
